FAERS Safety Report 9808510 (Version 1)
Quarter: 2014Q1

REPORT INFORMATION
  Report Type: Spontaneous
  Country: US (occurrence: US)
  Receive Date: 20140110
  Receipt Date: 20140110
  Transmission Date: 20141002
  Serious: No
  Sender: FDA-Public Use
  Company Number: US-GILEAD-2011-0037413

PATIENT
  Sex: Female

DRUGS (5)
  1. VIREAD [Suspect]
     Indication: HIV INFECTION
     Dates: start: 2000
  2. KALETRA [Concomitant]
     Indication: HIV INFECTION
     Dates: start: 2000, end: 2011
  3. ZERIT [Concomitant]
     Indication: HIV INFECTION
     Dates: start: 2000, end: 2011
  4. ISENTRESS [Concomitant]
     Dates: start: 2011
  5. ZIAGEN [Concomitant]
     Indication: HIV INFECTION
     Dates: start: 2011

REACTIONS (3)
  - Diarrhoea [Recovered/Resolved]
  - Abdominal pain [Recovered/Resolved]
  - Nausea [Unknown]
